FAERS Safety Report 7478547-3 (Version None)
Quarter: 2011Q2

REPORT INFORMATION
  Report Type: 
  Country: None (occurrence: None)
  Receive Date: 20110513
  Receipt Date: 20110510
  Transmission Date: 20111010
  Serious: Yes (Hospitalization)
  Sender: FDA-Public Use
  Company Number: JP-SANOFI-AVENTIS-2011SA019939

PATIENT
  Age: 2 Month
  Sex: Female
  Weight: 5 kg

DRUGS (3)
  1. CLAFORAN [Suspect]
     Indication: PNEUMONIA
     Route: 041
     Dates: start: 20100420, end: 20100423
  2. DEXTROSE IN LACTATED RINGER'S [Concomitant]
     Route: 041
     Dates: start: 20100420, end: 20100423
  3. VICCILLIN [Concomitant]
     Indication: PNEUMONIA
     Route: 041
     Dates: start: 20100420, end: 20100422

REACTIONS (5)
  - INFUSION SITE EROSION [None]
  - INFUSION SITE VESICLES [None]
  - INFUSION SITE SWELLING [None]
  - INFUSION SITE NECROSIS [None]
  - INFUSION SITE EXTRAVASATION [None]
